FAERS Safety Report 6516851-3 (Version None)
Quarter: 2009Q4

REPORT INFORMATION
  Report Type: 
  Country: None (occurrence: None)
  Receive Date: 20091223
  Receipt Date: 20091217
  Transmission Date: 20100525
  Serious: Yes (Hospitalization)
  Sender: FDA-Public Use
  Company Number: PHHO2009JP10286

PATIENT
  Sex: Male
  Weight: 167 kg

DRUGS (10)
  1. MYCOPHENOLATE MOFETIL [Suspect]
     Indication: RENAL TRANSPLANT
     Dosage: 2 G/DAY
     Route: 048
     Dates: start: 20090101
  2. MYCOPHENOLATE MOFETIL [Suspect]
     Dosage: 500 MG/DAY
     Route: 048
     Dates: start: 20090415, end: 20090818
  3. MYCOPHENOLATE MOFETIL [Suspect]
     Dosage: 500 MG/DAY
     Route: 048
     Dates: start: 20090829
  4. NEORAL [Suspect]
     Indication: RENAL TRANSPLANT
     Dosage: 150 MG/DAY
     Route: 048
     Dates: start: 20090513, end: 20090818
  5. NEORAL [Suspect]
     Dosage: 150 MG/DAY
     Route: 048
     Dates: start: 20090829
  6. MEDROL [Suspect]
     Indication: RENAL TRANSPLANT
     Dosage: 4 MG/DAY
     Route: 048
     Dates: start: 20090520, end: 20090818
  7. MEDROL [Suspect]
     Dosage: 4 MG/DAY
     Route: 048
     Dates: start: 20090829
  8. TAKEPRON [Concomitant]
     Indication: GASTRITIS PROPHYLAXIS
     Dosage: 12 MG, UNK
     Route: 048
     Dates: start: 20090325, end: 20090818
  9. TAKEPRON [Concomitant]
     Dosage: 30 MG, UNK
     Route: 041
     Dates: start: 20090818
  10. MAALOX [Concomitant]
     Indication: GASTRITIS PROPHYLAXIS
     Dosage: 1.2 G, UNK
     Route: 048
     Dates: start: 20090323

REACTIONS (10)
  - ABDOMINAL PAIN [None]
  - BILE DUCT STENOSIS [None]
  - BILIARY DILATATION [None]
  - BILIARY DRAINAGE [None]
  - CHILLS [None]
  - CHOLECYSTECTOMY [None]
  - CHOLECYSTITIS ACUTE [None]
  - ENDOSCOPIC RETROGRADE CHOLANGIOPANCREATOGRAPHY [None]
  - PANCREATITIS ACUTE [None]
  - STENT PLACEMENT [None]
